FAERS Safety Report 6710284-2 (Version None)
Quarter: 2010Q2

REPORT INFORMATION
  Report Type: 
  Country: None (occurrence: None)
  Receive Date: 20100430
  Receipt Date: 20100416
  Transmission Date: 20101027
  Serious: Yes (Other)
  Sender: FDA-Public Use
  Company Number: 010550

PATIENT
  Age: 39 Year
  Sex: Female

DRUGS (4)
  1. VIMPAT [Suspect]
     Indication: PARTIAL SEIZURES
     Dosage: (DOSE INCREASE: 50 MG/WEEK. MAXIMUM DOSE: 400. DOSE AT TIME OF LISTING: 300.)
     Dates: start: 20090127, end: 20090401
  2. TOPIRAMATE [Concomitant]
  3. ZONISAMIDE [Concomitant]
  4. LAMOTRIGINE [Concomitant]

REACTIONS (4)
  - CHEST PAIN [None]
  - GAIT DISTURBANCE [None]
  - HEADACHE [None]
  - VERTIGO [None]
